FAERS Safety Report 11773024 (Version 1)
Quarter: 2015Q4

REPORT INFORMATION
  Report Type: Spontaneous
  Country: JP (occurrence: JP)
  Receive Date: 20151124
  Receipt Date: 20151124
  Transmission Date: 20160304
  Serious: Yes (Other)
  Sender: FDA-Public Use
  Company Number: JP-PFIZER INC-2015401316

PATIENT
  Age: 6 Decade
  Sex: Female

DRUGS (3)
  1. MICAFUNGIN SODIUM [Concomitant]
     Active Substance: MICAFUNGIN SODIUM
  2. PREDONINE [Suspect]
     Active Substance: PREDNISOLONE\PREDNISOLONE ACETATE\PREDNISOLONE SODIUM SUCCINATE
  3. DIFLUCAN [Suspect]
     Active Substance: FLUCONAZOLE

REACTIONS (2)
  - Rash [Unknown]
  - Systemic lupus erythematosus [Unknown]
